FAERS Safety Report 9686578 (Version 2)
Quarter: 2013Q4

REPORT INFORMATION
  Report Type: Spontaneous
  Country: US (occurrence: US)
  Receive Date: 20131113
  Receipt Date: 20131212
  Transmission Date: 20140711
  Serious: Yes (Hospitalization)
  Sender: FDA-Public Use
  Company Number: US-GLAXOSMITHKLINE-A1044181A

PATIENT
  Sex: Female

DRUGS (1)
  1. VOTRIENT [Suspect]
     Indication: PRODUCT USED FOR UNKNOWN INDICATION
     Dosage: 200MG UNKNOWN
     Route: 065

REACTIONS (5)
  - Renal failure acute [Recovered/Resolved]
  - Hydronephrosis [Recovered/Resolved]
  - Malignant neoplasm progression [Recovered/Resolved]
  - Urethral obstruction [Recovered/Resolved]
  - Headache [Recovered/Resolved]
